FAERS Safety Report 8113852-9 (Version None)
Quarter: 2012Q1

REPORT INFORMATION
  Report Type: 
  Country: None (occurrence: None)
  Receive Date: 20120203
  Receipt Date: 20120203
  Transmission Date: 20120608
  Serious: Yes (Death, Other)
  Sender: FDA-Public Use
  Company Number: PHHY2012AU005305

PATIENT
  Sex: Male

DRUGS (4)
  1. PALIPERIDONE [Concomitant]
     Indication: PSYCHOTIC DISORDER
     Dosage: 9 MG, NOCTE
  2. OMEPRAZOLE [Concomitant]
     Indication: GASTROOESOPHAGEAL REFLUX DISEASE
     Dosage: 20 MG, MANE
  3. CLOZARIL [Suspect]
     Dosage: 400 MG
     Dates: start: 20080716
  4. CITALOPRAM HYDROBROMIDE [Concomitant]
     Indication: DEPRESSION
     Dosage: 40 MG, MANE
     Dates: start: 20080101

REACTIONS (4)
  - COMPLETED SUICIDE [None]
  - PARANOIA [None]
  - BACK INJURY [None]
  - ANXIETY [None]
